FAERS Safety Report 18305589 (Version 1)
Quarter: 2020Q3

REPORT INFORMATION
  Report Type: Spontaneous
  Country: US (occurrence: US)
  Receive Date: 20200923
  Receipt Date: 20200923
  Transmission Date: 20201103
  Serious: Yes (Hospitalization, Other)
  Sender: FDA-Public Use
  Company Number: US-TEVA-2020-US-1830254

PATIENT
  Sex: Female

DRUGS (10)
  1. FENTANYL. [Suspect]
     Active Substance: FENTANYL
     Indication: PRODUCT USED FOR UNKNOWN INDICATION
     Route: 065
  2. CARISOPRODOL. [Suspect]
     Active Substance: CARISOPRODOL
     Route: 065
  3. PRILOSEC [Suspect]
     Active Substance: OMEPRAZOLE MAGNESIUM
     Route: 065
  4. TRAZODONE [Suspect]
     Active Substance: TRAZODONE HYDROCHLORIDE
     Route: 065
  5. OXYCODONE [Suspect]
     Active Substance: OXYCODONE
     Route: 065
  6. PHENERGAN [Suspect]
     Active Substance: PROMETHAZINE HYDROCHLORIDE
     Route: 065
  7. ZOLOFT [Suspect]
     Active Substance: SERTRALINE HYDROCHLORIDE
     Route: 065
  8. OPANA [Suspect]
     Active Substance: OXYMORPHONE HYDROCHLORIDE
     Route: 065
  9. HYDROMORPHONE [Suspect]
     Active Substance: HYDROMORPHONE
     Route: 065
  10. KLONOPIN [Suspect]
     Active Substance: CLONAZEPAM
     Route: 065

REACTIONS (19)
  - Personal relationship issue [Unknown]
  - Feeling abnormal [Unknown]
  - Illness [Unknown]
  - Near death experience [Unknown]
  - Rheumatoid arthritis [Unknown]
  - Anger [Unknown]
  - Dementia [Unknown]
  - Gait disturbance [Unknown]
  - Nightmare [Unknown]
  - Muscle disorder [Unknown]
  - Mental disorder [Unknown]
  - Fall [Unknown]
  - Insomnia [Unknown]
  - Vomiting [Unknown]
  - Adverse event [Unknown]
  - Impaired work ability [Unknown]
  - Neck pain [Unknown]
  - Surgery [Unknown]
  - Drug detoxification [Unknown]
